FAERS Safety Report 21663933 (Version 1)
Quarter: 2022Q4

REPORT INFORMATION
  Report Type: Spontaneous
  Country: US (occurrence: None)
  Receive Date: 20221129
  Receipt Date: 20221129
  Transmission Date: 20230113
  Serious: Yes (Hospitalization)
  Sender: FDA-Public Use
  Company Number: None

PATIENT
  Sex: Female

DRUGS (45)
  1. NUCALA [Suspect]
     Active Substance: MEPOLIZUMAB
     Indication: Asthma
     Dosage: FREQUENCY : MONTHLY;?
     Route: 058
     Dates: start: 20210209
  2. ABILIFY [Concomitant]
     Active Substance: ARIPIPRAZOLE
  3. ALBUTEROL AER HFA [Concomitant]
  4. ALBUTEROL [Concomitant]
     Active Substance: ALBUTEROL
  5. AMLODIPINE [Concomitant]
     Active Substance: AMLODIPINE BESYLATE
  6. ARIPIPRAZOLE [Concomitant]
     Active Substance: ARIPIPRAZOLE
  7. ATORVASTATIN [Concomitant]
     Active Substance: ATORVASTATIN
  8. AUSTEDO [Concomitant]
     Active Substance: DEUTETRABENAZINE
  9. AZITHROMYCIN [Concomitant]
     Active Substance: AZITHROMYCIN
  10. BENZONATATE [Concomitant]
  11. BENZTROPINE [Concomitant]
     Active Substance: BENZTROPINE
  12. BUT/APAP/CAF [Concomitant]
  13. CARVEDILOL [Concomitant]
     Active Substance: CARVEDILOL
  14. CLOPIDOGREL [Concomitant]
     Active Substance: CLOPIDOGREL BISULFATE
  15. CYCLOBENZAPRINE [Concomitant]
     Active Substance: CYCLOBENZAPRINE
  16. FERROUS SULF [Concomitant]
  17. FLUCONAZOLE [Concomitant]
     Active Substance: FLUCONAZOLE
  18. FUROSEMIDE [Concomitant]
  19. GABAPENTIN [Concomitant]
     Active Substance: GABAPENTIN
  20. IPRATROPIUM/ SOL ALBUTER [Concomitant]
  21. KLONOPIN [Concomitant]
     Active Substance: CLONAZEPAM
  22. LEVOTHYROXIN [Concomitant]
  23. LIDOCAINE PAD [Concomitant]
  24. LISINOPRIL [Concomitant]
     Active Substance: LISINOPRIL
  25. METFORMIN [Concomitant]
     Active Substance: METFORMIN HYDROCHLORIDE
  26. METOPROLOL TARTRATE [Concomitant]
     Active Substance: METOPROLOL TARTRATE
  27. ONDANSETRON [Concomitant]
     Active Substance: ONDANSETRON
  28. OXCARBAZEPINE [Concomitant]
     Active Substance: OXCARBAZEPINE
  29. PAROXETINE [Concomitant]
     Active Substance: PAROXETINE
  30. PAXIL [Concomitant]
     Active Substance: PAROXETINE HYDROCHLORIDE
  31. PHENAZOPYRID [Concomitant]
  32. POTASSIUM CHLORIDE [Concomitant]
     Active Substance: POTASSIUM CHLORIDE
  33. PREDNISONE [Concomitant]
     Active Substance: PREDNISONE
  34. PRIMIDONE [Concomitant]
  35. PROMETH/COD SOL [Concomitant]
  36. SINGULAIR [Concomitant]
     Active Substance: MONTELUKAST SODIUM
  37. SPIRIVA AER [Concomitant]
  38. SPIRIVA CAP HANDIHLR [Concomitant]
  39. SUPREP BOWEL SOL PREP KIT [Concomitant]
  40. SYMBICORT AER [Concomitant]
  41. SYNTHROID [Concomitant]
     Active Substance: LEVOTHYROXINE SODIUM
  42. TAMSULOSIN [Concomitant]
     Active Substance: TAMSULOSIN
  43. TIZANIDINE [Concomitant]
     Active Substance: TIZANIDINE
  44. TOPIRAMATE [Concomitant]
     Active Substance: TOPIRAMATE
  45. TRINTELLIX [Concomitant]
     Active Substance: VORTIOXETINE HYDROBROMIDE

REACTIONS (1)
  - COVID-19 [None]
